FAERS Safety Report 4281756-8 (Version None)
Quarter: 2004Q1

REPORT INFORMATION
  Report Type: 
  Country: None (occurrence: None)
  Receive Date: 20040128
  Receipt Date: 20040113
  Transmission Date: 20041129
  Serious: Yes (Hospitalization)
  Sender: FDA-Public Use
  Company Number: RENA-10627

PATIENT
  Age: 57 Year
  Sex: Male
  Weight: 61 kg

DRUGS (10)
  1. RENAGEL [Suspect]
     Indication: HYPERPHOSPHATAEMIA
     Dosage: 1.5 G QD PO
     Route: 048
     Dates: start: 20030912, end: 20030101
  2. ALOSENN [Concomitant]
  3. BIO THREE [Concomitant]
  4. REBAMIPIDE [Concomitant]
  5. MECOBALAMIN [Concomitant]
  6. AMLODIPINE BESYLATE [Concomitant]
  7. RANITIDINE HYDROCHLORIDE [Concomitant]
  8. BENIDIPINE HYDROCHLORIDE [Concomitant]
  9. TERAZOSIN HYDROCHLORIDE [Concomitant]
  10. CALCIUM CARBONATE [Concomitant]

REACTIONS (3)
  - FLATULENCE [None]
  - ILEUS [None]
  - INTESTINAL OBSTRUCTION [None]
